FAERS Safety Report 7008338-9 (Version None)
Quarter: 2010Q3

REPORT INFORMATION
  Report Type: 
  Country: None (occurrence: None)
  Receive Date: 20100922
  Receipt Date: 20100916
  Transmission Date: 20110219
  Serious: Yes (Death, Hospitalization)
  Sender: FDA-Public Use
  Company Number: A0882229A

PATIENT
  Sex: Female
  Weight: 72 kg

DRUGS (1)
  1. SERETIDE [Suspect]
     Indication: PNEUMONIA
     Dosage: 2PUFF TWICE PER DAY
     Dates: start: 20100401, end: 20100422

REACTIONS (1)
  - PNEUMONIA [None]
